FAERS Safety Report 15408730 (Version 1)
Quarter: 2018Q3

REPORT INFORMATION
  Report Type: Report from Study
  Country: US (occurrence: US)
  Receive Date: 20180920
  Receipt Date: 20180920
  Transmission Date: 20181010
  Serious: Yes (Hospitalization)
  Sender: FDA-Public Use
  Company Number: US-TEVA-2018-US-955757

PATIENT
  Age: 56 Year
  Sex: Female

DRUGS (14)
  1. BUPROPN HCL [Concomitant]
     Active Substance: BUPROPION HYDROCHLORIDE
  2. CLONAZEPAM. [Concomitant]
     Active Substance: CLONAZEPAM
  3. OMEPRAZOLE. [Concomitant]
     Active Substance: OMEPRAZOLE
  4. AMLOD/VALSAR [Concomitant]
  5. ESZOPICLONE. [Concomitant]
     Active Substance: ESZOPICLONE
  6. MELOXICAM. [Concomitant]
     Active Substance: MELOXICAM
  7. PANTOPRAZOLE [Concomitant]
     Active Substance: PANTOPRAZOLE
  8. DULOXETINE. [Concomitant]
     Active Substance: DULOXETINE
  9. COPAXONE [Suspect]
     Active Substance: GLATIRAMER ACETATE
     Indication: MULTIPLE SCLEROSIS
     Route: 058
     Dates: start: 20180316
  10. DECARA [Concomitant]
  11. METOPROLOL. [Concomitant]
     Active Substance: METOPROLOL
  12. TIZANDINE [Concomitant]
     Active Substance: TIZANIDINE
  13. TRAMADOL. [Concomitant]
     Active Substance: TRAMADOL
  14. SERTRALINE [Concomitant]
     Active Substance: SERTRALINE HYDROCHLORIDE

REACTIONS (1)
  - Spinal fusion surgery [Not Recovered/Not Resolved]

NARRATIVE: CASE EVENT DATE: 201808
